FAERS Safety Report 8454714-7 (Version None)
Quarter: 2012Q2

REPORT INFORMATION
  Report Type: 
  Country: None (occurrence: None)
  Receive Date: 20120614
  Receipt Date: 20120530
  Transmission Date: 20120825
  Serious: Yes (Hospitalization)
  Sender: FDA-Public Use
  Company Number: JPI-P-021738

PATIENT
  Age: 51 Year
  Sex: Female
  Weight: 72.5755 kg

DRUGS (2)
  1. XYREM [Suspect]
     Indication: NARCOLEPSY
     Dosage: , ORAL; 9 GM (4.5 GM, 2 IN 1 D), ORAL
     Route: 048
     Dates: start: 20100701
  2. XYREM [Suspect]
     Indication: SOMNOLENCE
     Dosage: , ORAL; 9 GM (4.5 GM, 2 IN 1 D), ORAL
     Route: 048
     Dates: start: 20100701

REACTIONS (6)
  - HEART RATE ABNORMAL [None]
  - HEART RATE DECREASED [None]
  - ANKLE FRACTURE [None]
  - SYNCOPE [None]
  - FALL [None]
  - INTESTINAL OBSTRUCTION [None]
